FAERS Safety Report 10729214 (Version 2)
Quarter: 2015Q1

REPORT INFORMATION
  Report Type: Report from Study
  Country: DE (occurrence: DE)
  Receive Date: 20150122
  Receipt Date: 20150223
  Transmission Date: 20150721
  Serious: Yes (Hospitalization)
  Sender: FDA-Public Use
  Company Number: DE-CELGENE-DEU-2015011899

PATIENT
  Age: 40 Year
  Sex: Female
  Weight: 79 kg

DRUGS (9)
  1. GEMCITABINE [Suspect]
     Active Substance: GEMCITABINE\GEMCITABINE HYDROCHLORIDE
     Indication: BREAST CANCER
     Route: 041
     Dates: start: 20141024, end: 20141229
  2. GLANDOMED [Concomitant]
     Indication: PROPHYLAXIS
     Route: 065
     Dates: start: 20141024
  3. GEMCITABINE [Suspect]
     Active Substance: GEMCITABINE\GEMCITABINE HYDROCHLORIDE
     Route: 041
     Dates: start: 20150102
  4. BUSCOPAN [Concomitant]
     Active Substance: BUTYLSCOPOLAMINE BROMIDE
     Indication: PROPHYLAXIS
     Route: 065
     Dates: start: 20141215
  5. ABRAXANE [Suspect]
     Active Substance: PACLITAXEL
     Route: 041
     Dates: start: 20150102
  6. ABRAXANE [Suspect]
     Active Substance: PACLITAXEL
     Indication: BREAST CANCER
     Route: 041
     Dates: start: 20141024, end: 20141229
  7. VANEX [Concomitant]
     Indication: PROPHYLAXIS
     Route: 065
     Dates: start: 20141024
  8. FUCIDINE [Concomitant]
     Active Substance: FUSIDIC ACID
     Indication: FOLLICULITIS
     Route: 065
     Dates: start: 20141121
  9. PANTOPRAZOLE [Concomitant]
     Active Substance: PANTOPRAZOLE SODIUM
     Indication: PROPHYLAXIS
     Route: 065
     Dates: start: 20141024

REACTIONS (2)
  - Infection [Recovered/Resolved]
  - Bronchitis [Recovered/Resolved]

NARRATIVE: CASE EVENT DATE: 20141224
